FAERS Safety Report 9361639 (Version 1)
Quarter: 2013Q2

REPORT INFORMATION
  Report Type: Spontaneous
  Country: FR (occurrence: FR)
  Receive Date: 20130621
  Receipt Date: 20130621
  Transmission Date: 20140414
  Serious: Yes (Hospitalization)
  Sender: FDA-Public Use
  Company Number: FR-SANOFI-AVENTIS-2013SA060796

PATIENT
  Age: 88 Year
  Sex: Female

DRUGS (12)
  1. ASPEGIC [Suspect]
     Indication: PROPHYLAXIS
     Route: 048
     Dates: end: 20120813
  2. TELFAST [Suspect]
     Indication: HYPERSENSITIVITY
     Route: 048
     Dates: end: 20120813
  3. PLAVIX [Suspect]
     Indication: PRODUCT USED FOR UNKNOWN INDICATION
     Route: 048
     Dates: end: 20120813
  4. LAMALINE [Suspect]
     Indication: PAIN
     Route: 048
     Dates: end: 20120813
  5. LYRICA [Suspect]
     Indication: ANXIETY
     Route: 048
     Dates: end: 20120817
  6. TRAVATAN [Suspect]
     Indication: GLAUCOMA
     Route: 047
     Dates: end: 20120813
  7. TRUSOPT [Suspect]
     Indication: GLAUCOMA
     Route: 047
     Dates: end: 20120813
  8. FLUOXETINE [Concomitant]
     Route: 065
  9. VENTOLINE [Concomitant]
     Route: 065
  10. ADANCOR [Concomitant]
     Route: 065
  11. SERESTA [Concomitant]
     Route: 065
  12. PREVISCAN [Concomitant]
     Route: 065

REACTIONS (2)
  - Confusional state [Recovered/Resolved]
  - Hallucination [Recovered/Resolved]
